FAERS Safety Report 9251306 (Version 1)
Quarter: 2013Q1

REPORT INFORMATION
  Report Type: Spontaneous
  Country: US (occurrence: None)
  Receive Date: 20130305
  Receipt Date: 20130305
  Transmission Date: 20140127
  Serious: Yes (Other)
  Sender: FDA-Public Use
  Company Number: 163-21880-12072047

PATIENT
  Age: 79 Year
  Sex: Male
  Weight: 81.19 kg

DRUGS (2)
  1. REVLIMID [Suspect]
     Indication: PLASMA CELL MYELOMA
     Route: 048
     Dates: start: 20101122
  2. THALOMID [Suspect]
     Indication: PLASMA CELL MYELOMA
     Route: 048
     Dates: start: 20110427

REACTIONS (6)
  - Full blood count decreased [None]
  - Asthenia [None]
  - Platelet count decreased [None]
  - White blood cell count decreased [None]
  - Fatigue [None]
  - Fall [None]
